FAERS Safety Report 8386821-1 (Version None)
Quarter: 2012Q2

REPORT INFORMATION
  Report Type: 
  Country: None (occurrence: None)
  Receive Date: 20120523
  Receipt Date: 20120511
  Transmission Date: 20120825
  Serious: Yes (Hospitalization)
  Sender: FDA-Public Use
  Company Number: DSJ-2011-07463

PATIENT
  Age: 80 Year
  Sex: Female
  Weight: 64 kg

DRUGS (6)
  1. BOIOGITO [INGREDIENT UNKNOWN] [Suspect]
     Dosage: 5 GM,
  2. LACTULOSE [Suspect]
     Dosage: 40.8 GM,
  3. OLMESARTAN MEDOXOMIL [Suspect]
     Indication: ESSENTIAL HYPERTENSION
     Dosage: 20 MG, PER ORAL
     Route: 048
     Dates: start: 20100318
  4. JUVELA (TOCOPHERYL ACETATE) (TOCOPHERYL ACETATE) [Suspect]
     Dosage: 150 MG,
  5. ECARD HD (HYDROCHLOROTHIAZIDE, CANDESARTAN CILEXETIL (TABLET) [Concomitant]
  6. MAGLAX (MAGNESIUM OXIDE) (MAGNESIUM OXIDE) [Suspect]
     Dosage: 1000 MG,
     Dates: end: 20110123

REACTIONS (3)
  - PERIPHERAL COLDNESS [None]
  - PERIPHERAL VASCULAR DISORDER [None]
  - CHILLBLAINS [None]
